FAERS Safety Report 9272996 (Version 2)
Quarter: 2013Q3

REPORT INFORMATION
  Report Type: Spontaneous
  Country: CN (occurrence: CN)
  Receive Date: 20130506
  Receipt Date: 20130917
  Transmission Date: 20140515
  Serious: Yes (Death)
  Sender: FDA-Public Use
  Company Number: CN-BAXTER-2012BAX013937

PATIENT
  Age: 50 Year
  Sex: Male
  Weight: 53 kg

DRUGS (2)
  1. LOW CALCIUM PERITONEAL DIALYSIS SOLUTION ( LACTATE- G2.5%) [Suspect]
     Indication: AZOTAEMIA
     Route: 033
     Dates: start: 20120712, end: 20120713
  2. LOW CALCIUM PERITONEAL DIALYSIS SOLUTION ( LACTATE- G2.5%) [Suspect]
     Route: 033
     Dates: start: 20120714

REACTIONS (3)
  - Peritonitis [Fatal]
  - Decreased appetite [Recovering/Resolving]
  - Abdominal distension [Recovering/Resolving]
